FAERS Safety Report 26092689 (Version 1)
Quarter: 2025Q4

REPORT INFORMATION
  Report Type: Spontaneous
  Country: TR (occurrence: TR)
  Receive Date: 20251126
  Receipt Date: 20251126
  Transmission Date: 20260117
  Serious: Yes (Other)
  Sender: ABBVIE
  Company Number: TR-ABBVIE-6561756

PATIENT

DRUGS (1)
  1. OZURDEX [Suspect]
     Active Substance: DEXAMETHASONE
     Indication: Macular degeneration
     Dosage: TIME INTERVAL: AS NECESSARY: 1 DOSAGE FORM; INTRAVITREAL IMPLANT
     Route: 050

REACTIONS (2)
  - Venous occlusion [Recovering/Resolving]
  - Intraocular pressure increased [Recovering/Resolving]
